FAERS Safety Report 7448751-9 (Version None)
Quarter: 2011Q2

REPORT INFORMATION
  Report Type: 
  Country: None (occurrence: None)
  Receive Date: 20110429
  Receipt Date: 20100727
  Transmission Date: 20111010
  Serious: No
  Sender: FDA-Public Use
  Company Number: US-ASTRAZENECA-2010SE35364

PATIENT
  Age: 54 Year
  Sex: Male
  Weight: 90.7 kg

DRUGS (2)
  1. NEXIUM [Suspect]
     Indication: THROAT IRRITATION
     Route: 048
     Dates: start: 20010101
  2. PRILOSEC [Suspect]
     Indication: THROAT IRRITATION
     Route: 048
     Dates: end: 20010101

REACTIONS (4)
  - MULTIPLE FRACTURES [None]
  - BURNING SENSATION [None]
  - HEADACHE [None]
  - DRUG INEFFECTIVE [None]
